FAERS Safety Report 24394993 (Version 1)
Quarter: 2024Q4

REPORT INFORMATION
  Report Type: Report from Study
  Country: US (occurrence: US)
  Receive Date: 20241004
  Receipt Date: 20241004
  Transmission Date: 20250115
  Serious: Yes (Other)
  Sender: TAKEDA
  Company Number: US-TAKEDA-2024TUS070968

PATIENT
  Sex: Male

DRUGS (2)
  1. FRUQUINTINIB [Suspect]
     Active Substance: FRUQUINTINIB
     Indication: Colon cancer
     Dosage: 5 MILLIGRAM
     Route: 048
     Dates: start: 20240709
  2. FRUQUINTINIB [Suspect]
     Active Substance: FRUQUINTINIB
     Dosage: 5 MILLIGRAM
     Route: 048

REACTIONS (9)
  - Colon cancer [Unknown]
  - Abdominal pain upper [Unknown]
  - Flatulence [Unknown]
  - Constipation [Unknown]
  - Speech disorder [Unknown]
  - Dysphonia [Unknown]
  - Fatigue [Unknown]
  - Diarrhoea [Unknown]
  - Stomatitis [Unknown]
